FAERS Safety Report 24449508 (Version 2)
Quarter: 2024Q4

REPORT INFORMATION
  Report Type: Spontaneous
  Country: CA (occurrence: US)
  Receive Date: 20241017
  Receipt Date: 20241101
  Transmission Date: 20250114
  Serious: Yes (Disabling, Other)
  Sender: TEVA
  Company Number: US-TEVA-VS-3254501

PATIENT
  Sex: Male

DRUGS (4)
  1. PREDNISONE [Suspect]
     Active Substance: PREDNISONE
     Indication: Chorioretinopathy
     Route: 048
  2. TRIAMCINOLONE [Suspect]
     Active Substance: TRIAMCINOLONE
     Indication: Chorioretinopathy
     Route: 031
  3. METHOTREXATE [Suspect]
     Active Substance: METHOTREXATE
     Indication: Chorioretinopathy
     Route: 048
  4. METHOTREXATE [Suspect]
     Active Substance: METHOTREXATE
     Indication: Chorioretinopathy
     Dosage: INCREASED
     Route: 048

REACTIONS (5)
  - Choroidal osteoma [Recovering/Resolving]
  - Retinal haemorrhage [Recovered/Resolved]
  - Blindness unilateral [Unknown]
  - Choroidal neovascularisation [Recovered/Resolved]
  - Drug ineffective [Unknown]
